FAERS Safety Report 12515786 (Version 1)
Quarter: 2016Q2

REPORT INFORMATION
  Report Type: Spontaneous
  Country: FR (occurrence: FR)
  Receive Date: 20160630
  Receipt Date: 20160630
  Transmission Date: 20160815
  Serious: Yes (Hospitalization, Other)
  Sender: FDA-Public Use
  Company Number: FR-TEVA-670529ISR

PATIENT
  Age: 54 Year
  Sex: Male

DRUGS (19)
  1. PLITICAN [Concomitant]
     Active Substance: ALIZAPRIDE HYDROCHLORIDE
  2. BECILAN [Concomitant]
     Active Substance: PYRIDOXINE
  3. PYOSTACINE 500 MG [Suspect]
     Active Substance: PRISTINAMYCIN
     Indication: ERYSIPELAS
     Dosage: 6 DOSAGE FORMS DAILY;
     Route: 048
     Dates: start: 20160607, end: 20160610
  4. BEVITINE [Concomitant]
     Active Substance: THIAMINE
  5. IFOSFAMIDE EG [Suspect]
     Active Substance: IFOSFAMIDE
     Indication: RHABDOMYOSARCOMA
     Dosage: SECOND COURSE OF CHEMOTHERAPY
     Route: 042
     Dates: start: 20160608
  6. DOXORUBICINE TEVA [Suspect]
     Active Substance: DOXORUBICIN
     Indication: RHABDOMYOSARCOMA
     Dosage: SECOND COURSE OF CHEMOTHERAPY
     Route: 042
     Dates: start: 20160608
  7. BIONOLYTE [Concomitant]
     Active Substance: UNSPECIFIED INGREDIENT
  8. LOVENOX [Concomitant]
     Active Substance: ENOXAPARIN SODIUM
  9. MOVICOL [Concomitant]
     Active Substance: POLYETHYLENE GLYCOL 3350\POTASSIUM CHLORIDE\SODIUM BICARBONATE\SODIUM CHLORIDE
  10. RELISTOR [Concomitant]
     Active Substance: METHYLNALTREXONE BROMIDE
  11. ACUPAN [Concomitant]
     Active Substance: NEFOPAM HYDROCHLORIDE
  12. LYRICA 300 MG [Concomitant]
  13. VITAMIN PP [Concomitant]
  14. PARACETAMOL [Concomitant]
     Active Substance: ACETAMINOPHEN
  15. KLEAN PREP [Concomitant]
  16. INSTANYL 200 MCG/DOSE [Concomitant]
     Dosage: FORM: SOLUTION FOR NASAL SPRAY
  17. LAROXYL 40 MG/ML [Concomitant]
     Active Substance: AMITRIPTYLINE HYDROCHLORIDE
  18. OXYCONTIN LP 80 MG [Concomitant]
  19. OXYNORMORO 20 MG [Concomitant]

REACTIONS (5)
  - Asterixis [Recovered/Resolved]
  - Encephalopathy [Recovered/Resolved]
  - Head injury [None]
  - Visual impairment [Recovered/Resolved]
  - Fall [Recovered/Resolved]

NARRATIVE: CASE EVENT DATE: 20160610
